FAERS Safety Report 12264682 (Version 3)
Quarter: 2019Q4

REPORT INFORMATION
  Report Type: Spontaneous
  Country: US (occurrence: US)
  Receive Date: 20160413
  Receipt Date: 20191126
  Transmission Date: 20200122
  Serious: Yes (Hospitalization, Other)
  Sender: FDA-Public Use
  Company Number: US-PFIZER INC-2016208473

PATIENT
  Age: 60 Year
  Sex: Male

DRUGS (18)
  1. VIAGRA [Suspect]
     Active Substance: SILDENAFIL CITRATE
     Dosage: UNK, AS NEEDED (100 MG TABLETS-ONE HALF TO ONE TABLET)
     Route: 048
     Dates: start: 200603, end: 2011
  2. VIAGRA [Suspect]
     Active Substance: SILDENAFIL CITRATE
     Dosage: UNK, AS NEEDED (SOMETIMES APPROXIMATELY ONCE A WEEK SOMETIMES MORE)
     Route: 048
     Dates: start: 20100907, end: 2015
  3. VIAGRA [Suspect]
     Active Substance: SILDENAFIL CITRATE
     Dosage: UNK, AS NEEDED (100 MG TABLETS-ONE HALF TO ONE TABLET)
     Route: 048
     Dates: start: 20051014, end: 200511
  4. SILDENAFIL CITRATE. [Suspect]
     Active Substance: SILDENAFIL CITRATE
     Indication: ERECTILE DYSFUNCTION
     Dosage: UNK, AS NEEDED, IT VARIED, SOMETIMES APPROXIMATELY ONCE A WEEK SOMETIMES MORE
     Dates: start: 20121204, end: 201312
  5. VIAGRA [Suspect]
     Active Substance: SILDENAFIL CITRATE
     Indication: BENIGN PROSTATIC HYPERPLASIA
     Dosage: UNK, AS NEEDED (100 MG TABLETS-ONE HALF TO ONE TABLET)
     Route: 048
     Dates: start: 20040828, end: 200502
  6. VIAGRA [Suspect]
     Active Substance: SILDENAFIL CITRATE
     Dosage: UNK, AS NEEDED (100 MG TABLETS-ONE HALF TO ONE TABLET)
     Route: 048
     Dates: start: 20020129, end: 200408
  7. VIAGRA [Suspect]
     Active Substance: SILDENAFIL CITRATE
     Dosage: UNK, AS NEEDED (SOMETIMES APPROXIMATELY ONCE A WEEK SOMETIMES MORE)
     Route: 048
     Dates: start: 20100907, end: 2015
  8. SILDENAFIL CITRATE. [Suspect]
     Active Substance: SILDENAFIL CITRATE
     Dosage: UNK, AS NEEDED, IT VARIED, SOMETIMES APPROXIMATELY ONCE A WEEK SOMETIMES MORE
     Dates: start: 20100907, end: 2015
  9. VIAGRA [Suspect]
     Active Substance: SILDENAFIL CITRATE
     Dosage: UNK, AS NEEDED (SOMETIMES APPROXIMATELY ONCE A WEEK SOMETIMES MORE)
     Route: 048
     Dates: start: 20121204, end: 201312
  10. SILDENAFIL CITRATE. [Suspect]
     Active Substance: SILDENAFIL CITRATE
     Indication: BENIGN PROSTATIC HYPERPLASIA
     Dosage: UNK, AS NEEDED, IT VARIED, SOMETIMES APPROXIMATELY ONCE A WEEK SOMETIMES MORE
     Dates: start: 20100907, end: 2015
  11. CIALIS [Suspect]
     Active Substance: TADALAFIL
     Dosage: 0.5 DF, DAILY
     Route: 048
     Dates: start: 20050228, end: 200508
  12. LEVITRA [Suspect]
     Active Substance: VARDENAFIL HYDROCHLORIDE
     Indication: ERECTILE DYSFUNCTION
     Dosage: 1 DF, WEEKLY (ONE TABLET AS DIRECTED, AVERAGE APPROXIMATELY ONCE A WEEK)
     Dates: start: 20090707, end: 201009
  13. LEVITRA [Suspect]
     Active Substance: VARDENAFIL HYDROCHLORIDE
     Indication: BENIGN PROSTATIC HYPERPLASIA
     Dosage: 1 DF, WEEKLY (ONE TABLET AS DIRECTED, AVERAGE APPROXIMATELY ONCE A WEEK)
     Dates: start: 20111117, end: 201210
  14. VIAGRA [Suspect]
     Active Substance: SILDENAFIL CITRATE
     Indication: ERECTILE DYSFUNCTION
     Dosage: UNK, REGULARLY
     Route: 048
     Dates: start: 200201, end: 2015
  15. VIAGRA [Suspect]
     Active Substance: SILDENAFIL CITRATE
     Dosage: UNK, AS NEEDED (100 MG TABLETS-ONE HALF TO ONE TABLET)
     Route: 048
     Dates: start: 20060110, end: 200603
  16. GLUCOSAMINE SULFATE [Concomitant]
     Active Substance: GLUCOSAMINE SULFATE
     Indication: ARTHRALGIA
     Dosage: UNK
  17. GLUCOSAMINE SULFATE [Concomitant]
     Active Substance: GLUCOSAMINE SULFATE
     Indication: BACK PAIN
  18. CALCIUM [Concomitant]
     Active Substance: CALCIUM
     Indication: PROPHYLAXIS
     Dosage: UNK

REACTIONS (4)
  - Malignant melanoma in situ [Unknown]
  - Anxiety [Unknown]
  - Emotional distress [Unknown]
  - Malignant melanoma [Unknown]

NARRATIVE: CASE EVENT DATE: 20101005
